FAERS Safety Report 9617566 (Version 2)
Quarter: 2013Q4

REPORT INFORMATION
  Report Type: Spontaneous
  Country: US (occurrence: US)
  Receive Date: 20131011
  Receipt Date: 20131011
  Transmission Date: 20140711
  Serious: No
  Sender: FDA-Public Use
  Company Number: US-B.I. PHARMACEUTICALS,INC./RIDGEFIELD-2013-BI-05153BP

PATIENT
  Sex: Female

DRUGS (4)
  1. COMBIVENT [Suspect]
     Indication: CHRONIC OBSTRUCTIVE PULMONARY DISEASE
     Dosage: STRENGTH: 20MCG/100 MCG; DAILY DOSE: 40MCG/200 MCG
     Route: 055
     Dates: start: 201305
  2. ZANTAC 75 (RANITIDINE HYDROCHLORIDE) [Suspect]
     Indication: DYSPEPSIA
     Route: 048
     Dates: start: 2013
  3. ZANTAC 75 (RANITIDINE HYDROCHLORIDE) [Suspect]
     Indication: DYSPEPSIA
  4. QVAR [Concomitant]
     Indication: CHRONIC OBSTRUCTIVE PULMONARY DISEASE
     Dosage: 4 PUF
     Route: 055

REACTIONS (6)
  - Cough [Not Recovered/Not Resolved]
  - Dyspepsia [Recovered/Resolved]
  - Rib fracture [Recovered/Resolved]
  - Fall [Recovered/Resolved]
  - Cough [Not Recovered/Not Resolved]
  - Bone density decreased [Not Recovered/Not Resolved]
